FAERS Safety Report 14794855 (Version 9)
Quarter: 2019Q2

REPORT INFORMATION
  Report Type: Spontaneous
  Country: GR (occurrence: GR)
  Receive Date: 20180423
  Receipt Date: 20190408
  Transmission Date: 20190711
  Serious: Yes (Other)
  Sender: FDA-Public Use
  Company Number: GR-MYLANLABS-2018M1026403

PATIENT
  Age: 58 Year
  Sex: Female

DRUGS (8)
  1. AMOXIL                             /00249602/ [Interacting]
     Active Substance: AMOXICILLIN
     Indication: TOOTH ABSCESS
     Dosage: UNK
     Route: 065
     Dates: start: 20180312, end: 20180318
  2. LONARID                            /00154101/ [Suspect]
     Active Substance: ACETAMINOPHEN\CAFFEINE\CODEINE PHOSPHATE
     Indication: HEADACHE
     Dosage: UNK
     Route: 048
     Dates: start: 20180314
  3. NORGESIC [Interacting]
     Active Substance: ASPIRIN\CAFFEINE\ORPHENADRINE CITRATE
     Indication: MYALGIA
     Dosage: UNK
     Route: 016
     Dates: start: 20180312
  4. TENORMIN [Interacting]
     Active Substance: ATENOLOL
     Indication: TACHYCARDIA
     Dosage: UNK
     Route: 016
  5. PANADOL EXTRA [Interacting]
     Active Substance: ACETAMINOPHEN\CAFFEINE
     Indication: HEADACHE
     Dosage: UNK
     Route: 065
     Dates: start: 20180314
  6. BIOFENAC                           /01140001/ [Interacting]
     Active Substance: ACECLOFENAC
     Indication: MYALGIA
     Dosage: UNK
     Route: 065
     Dates: start: 20180312
  7. ACICLOVIR [Suspect]
     Active Substance: ACYCLOVIR
     Indication: HERPES VIRUS INFECTION
     Dosage: 200 MILLIGRAM, QD
     Route: 065
     Dates: start: 20180310
  8. ZOVIRAX [Interacting]
     Active Substance: ACYCLOVIR
     Indication: HERPES VIRUS INFECTION
     Dosage: 200 MILLIGRAM, QD
     Dates: start: 20180310, end: 20180320

REACTIONS (5)
  - Vision blurred [Not Recovered/Not Resolved]
  - Vertigo [Recovered/Resolved]
  - Drug interaction [Not Recovered/Not Resolved]
  - Vitreous detachment [Not Recovered/Not Resolved]
  - Hypoaesthesia [Recovered/Resolved]

NARRATIVE: CASE EVENT DATE: 20180314
